FAERS Safety Report 4979160-X (Version None)
Quarter: 2006Q2

REPORT INFORMATION
  Report Type: 
  Country: None (occurrence: None)
  Receive Date: 20060418
  Receipt Date: 20060406
  Transmission Date: 20061013
  Serious: Yes (Other)
  Sender: FDA-Public Use
  Company Number: 221043

PATIENT
  Age: 38 Year
  Sex: Female
  Weight: 68.3 kg

DRUGS (6)
  1. MABTHERA (RITUXIMAB) CONC FOR SOLUTION FOR INFUSION [Suspect]
     Indication: B-CELL LYMPHOMA
     Dosage: 626 MG, 3/WEEK, INTRAVENOUS
     Route: 042
     Dates: start: 20051107
  2. CYCLOPHOSPHAMIDE [Suspect]
     Indication: B-CELL LYMPHOMA
     Dosage: 1250 MG, 3/WEEK, INTRAVENOUS
     Route: 042
     Dates: start: 20051107
  3. VINCRISTINE [Suspect]
     Indication: B-CELL LYMPHOMA
     Dosage: 1 MG, 3/WEEK, INTRAVENOUS
     Route: 042
     Dates: start: 20051107
  4. DOXORUBICIN HCL [Suspect]
     Indication: B-CELL LYMPHOMA
  5. PREDNISONE TAB [Suspect]
     Indication: B-CELL LYMPHOMA
     Dosage: 100 MG, 3/WEEK, ORAL
     Route: 048
     Dates: start: 20051107
  6. ALOXI [Suspect]
     Indication: NAUSEA
     Dosage: 0.25 MG, INTRAVENOUS
     Route: 042
     Dates: start: 20051129, end: 20051129

REACTIONS (3)
  - ABORTION MISSED [None]
  - DRUG EXPOSURE DURING PREGNANCY [None]
  - PREGNANCY [None]
